FAERS Safety Report 5266302-4 (Version None)
Quarter: 2007Q1

REPORT INFORMATION
  Report Type: 
  Country: None (occurrence: None)
  Receive Date: 20070315
  Receipt Date: 20070314
  Transmission Date: 20070707
  Serious: Yes (Other)
  Sender: FDA-Public Use
  Company Number: GB-ROCHE-483666

PATIENT
  Age: 31 Year
  Sex: Female
  Weight: 85 kg

DRUGS (4)
  1. XENICAL [Suspect]
     Indication: OBESITY
     Route: 048
     Dates: start: 20060920, end: 20070101
  2. LABETALOL HCL [Concomitant]
     Indication: HYPERTENSION
     Route: 048
     Dates: start: 19990615
  3. METFORMIN HCL [Concomitant]
     Route: 048
     Dates: start: 19990615
  4. TELFAST [Concomitant]
     Route: 048
     Dates: start: 20061215

REACTIONS (1)
  - VAGINAL HAEMORRHAGE [None]
